FAERS Safety Report 5666741-3 (Version None)
Quarter: 2008Q1

REPORT INFORMATION
  Report Type: 
  Country: None (occurrence: None)
  Receive Date: 20080315
  Receipt Date: 20080114
  Transmission Date: 20080703
  Serious: No
  Sender: FDA-Public Use
  Company Number: US-ABBOTT-07P-163-0431496-00

PATIENT
  Age: 55 Year
  Sex: Male
  Weight: 88.53 kg

DRUGS (3)
  1. HUMIRA [Suspect]
     Indication: PSORIATIC ARTHROPATHY
     Route: 058
     Dates: start: 20071220
  2. UNKNOWN MEDICATION [Concomitant]
     Indication: NERVE COMPRESSION
  3. UNKNOWN MEDICATION [Concomitant]
     Indication: PROSTATIC DISORDER

REACTIONS (2)
  - INJECTION SITE IRRITATION [None]
  - MYALGIA [None]
